FAERS Safety Report 15566111 (Version 1)
Quarter: 2018Q4

REPORT INFORMATION
  Report Type: Report from Study
  Country: AU (occurrence: AU)
  Receive Date: 20181030
  Receipt Date: 20181030
  Transmission Date: 20190205
  Serious: Yes (Other)
  Sender: FDA-Public Use
  Company Number: AU-MYLANLABS-2018M1080972

PATIENT
  Age: 35 Year
  Sex: Male

DRUGS (2)
  1. CLOZARIL [Suspect]
     Active Substance: CLOZAPINE
     Indication: SCHIZOPHRENIA
     Dosage: 9 DF, UNK
     Route: 048
     Dates: start: 20151009, end: 20181011
  2. CLOZARIL [Suspect]
     Active Substance: CLOZAPINE
     Dosage: 6.25 MG, UNK
     Dates: start: 201810

REACTIONS (2)
  - Choking [Unknown]
  - Dysgeusia [Unknown]

NARRATIVE: CASE EVENT DATE: 20181011
